FAERS Safety Report 18641771 (Version 1)
Quarter: 2020Q4

REPORT INFORMATION
  Report Type: Spontaneous
  Country: US (occurrence: US)
  Receive Date: 20201221
  Receipt Date: 20201221
  Transmission Date: 20210114
  Serious: Yes (Life-Threatening, Hospitalization, Other)
  Sender: FDA-Public Use
  Company Number: US-ACCORD-211682

PATIENT
  Age: 55 Year
  Sex: Female

DRUGS (6)
  1. INSULIN GLARGINE [Concomitant]
     Active Substance: INSULIN GLARGINE
     Indication: TYPE 2 DIABETES MELLITUS
     Dosage: AT NIGHT
     Route: 058
  2. DILTIAZEM/DILTIAZEM HYDROCHLORIDE/DILTIAZEM MALATE [Suspect]
     Active Substance: DILTIAZEM
     Indication: ESSENTIAL HYPERTENSION
  3. HYDRALAZINE [Concomitant]
     Active Substance: HYDRALAZINE HYDROCHLORIDE
     Indication: ESSENTIAL HYPERTENSION
  4. ATORVASTATIN [Concomitant]
     Active Substance: ATORVASTATIN
  5. BUMETANIDE. [Concomitant]
     Active Substance: BUMETANIDE
     Indication: ESSENTIAL HYPERTENSION
  6. METOLAZONE. [Concomitant]
     Active Substance: METOLAZONE
     Indication: ESSENTIAL HYPERTENSION
     Dosage: BEFORE THE MORNING DOSE OF BUMETANIDE

REACTIONS (1)
  - BRASH syndrome [Recovered/Resolved]
